FAERS Safety Report 23198159 (Version 1)
Quarter: 2023Q4

REPORT INFORMATION
  Report Type: Report from Study
  Country: US (occurrence: None)
  Receive Date: 20231117
  Receipt Date: 20231117
  Transmission Date: 20240110
  Serious: Yes (Other)
  Sender: FDA-Public Use
  Company Number: 2023A256360

PATIENT
  Sex: Male
  Weight: 79.4 kg

DRUGS (22)
  1. CALQUENCE [Suspect]
     Active Substance: ACALABRUTINIB
     Indication: B-cell small lymphocytic lymphoma
     Route: 048
  2. AMMONIUM LACTATE [Concomitant]
     Active Substance: AMMONIUM LACTATE
  3. ATORVASTATIN CALCIUM [Concomitant]
     Active Substance: ATORVASTATIN CALCIUM
     Dosage: 20
     Route: 048
  4. CLOPIDOGREL BISULFATE [Concomitant]
     Active Substance: CLOPIDOGREL BISULFATE
     Dosage: 7
     Route: 048
  5. CVS IRON [Concomitant]
     Dosage: 240 (27 FE) MG
     Route: 048
  6. DICLOFENAC SODIUM [Concomitant]
     Active Substance: DICLOFENAC\DICLOFENAC SODIUM
     Route: 048
  7. DICLOFENAC SODIUM [Concomitant]
     Active Substance: DICLOFENAC\DICLOFENAC SODIUM
  8. GNP FLUTICASONE PROPIONATE [Concomitant]
  9. IRON [Concomitant]
     Active Substance: IRON
     Dosage: 325 (65 FE) MG
     Route: 048
  10. LOSARTAN POTASSIUM [Concomitant]
     Active Substance: LOSARTAN POTASSIUM
     Dosage: 25 M
     Route: 048
  11. PEPTO-BISMOL [Concomitant]
     Active Substance: BISMUTH SUBSALICYLATE
     Route: 048
  12. RA MAGNESIUM [Concomitant]
     Route: 048
  13. RYBELSUS [Concomitant]
     Active Substance: SEMAGLUTIDE
     Route: 048
  14. TAMSULOSIN HYDROCHLORIDE [Concomitant]
     Active Substance: TAMSULOSIN HYDROCHLORIDE
     Route: 048
  15. TAMSULOSIN HYDROCHLORIDE [Concomitant]
     Active Substance: TAMSULOSIN HYDROCHLORIDE
     Route: 048
  16. TYLENOL EXTRA STRENGTH [Concomitant]
     Active Substance: ACETAMINOPHEN
     Route: 048
  17. URINOZINC PROSTATE [Concomitant]
     Route: 048
  18. VITAMIN B12 [Concomitant]
     Active Substance: CYANOCOBALAMIN
     Route: 048
  19. VITAMIN D2 [Concomitant]
     Active Substance: ERGOCALCIFEROL
     Route: 048
  20. VITAMIN D3 ULTRA STRENGTH [Concomitant]
     Route: 048
  21. YL VITAMIN C-ROSE HIPS [Concomitant]
     Route: 048
  22. ZINC SULFATE [Concomitant]
     Active Substance: ZINC SULFATE
     Dosage: 220
     Route: 048

REACTIONS (2)
  - Poor peripheral circulation [Unknown]
  - Fat tissue increased [Unknown]
